FAERS Safety Report 13354098 (Version 1)
Quarter: 2017Q1

REPORT INFORMATION
  Report Type: Spontaneous
  Country: US (occurrence: US)
  Receive Date: 20170320
  Receipt Date: 20170320
  Transmission Date: 20170429
  Serious: Yes (Other)
  Sender: FDA-Public Use
  Company Number: None

PATIENT
  Age: 75 Year
  Weight: 72 kg

DRUGS (7)
  1. VITAMIN B14 [Concomitant]
  2. VITAMIN D3 [Concomitant]
     Active Substance: CHOLECALCIFEROL
  3. REMICADE [Concomitant]
     Active Substance: INFLIXIMAB
  4. PREDNISONE. [Concomitant]
     Active Substance: PREDNISONE
  5. TRAMADOL. [Concomitant]
     Active Substance: TRAMADOL
  6. MULTI VITAMIN [Concomitant]
     Active Substance: VITAMINS
  7. INFLECTRA [Suspect]
     Active Substance: INFLIXIMAB-DYYB
     Indication: RHEUMATOID ARTHRITIS
     Dosage: QUANTITY:5 VIALS;OTHER FREQUENCY:8 WEEKS;OTHER ROUTE:INFUSION?

REACTIONS (5)
  - Gait disturbance [None]
  - Headache [None]
  - Somnolence [None]
  - Nausea [None]
  - Constipation [None]

NARRATIVE: CASE EVENT DATE: 20170314
